FAERS Safety Report 5321296-8 (Version None)
Quarter: 2007Q2

REPORT INFORMATION
  Report Type: 
  Country: None (occurrence: None)
  Receive Date: 20070507
  Receipt Date: 20070507
  Transmission Date: 20071010
  Serious: No
  Sender: FDA-Public Use
  Company Number: None

PATIENT
  Age: 56 Year
  Sex: Male
  Weight: 83.9154 kg

DRUGS (1)
  1. DIOVAN HCT [Suspect]
     Indication: HYPERTENSION
     Dosage: 1   DAILY   PO
     Route: 048
     Dates: start: 20070223, end: 20070504

REACTIONS (4)
  - BACK PAIN [None]
  - LOCAL SWELLING [None]
  - MUSCLE SPASMS [None]
  - NAUSEA [None]
